FAERS Safety Report 17194547 (Version 1)
Quarter: 2019Q4

REPORT INFORMATION
  Report Type: Spontaneous
  Country: SE (occurrence: SE)
  Receive Date: 20191224
  Receipt Date: 20191224
  Transmission Date: 20200122
  Serious: Yes (Hospitalization)
  Sender: FDA-Public Use
  Company Number: SE-009507513-1912SWE008203

PATIENT
  Age: 39 Year
  Sex: Female

DRUGS (4)
  1. OXASCAND [Suspect]
     Active Substance: OXAZEPAM
     Dosage: 50 MILLIGRAM
     Route: 048
     Dates: start: 20190603, end: 20190603
  2. MIRTAZAPINE. [Suspect]
     Active Substance: MIRTAZAPINE
     Dosage: 150 MILLIGRAM
     Route: 048
     Dates: start: 20190603, end: 20190603
  3. ATARAX [Suspect]
     Active Substance: HYDROXYZINE HYDROCHLORIDE
     Dosage: 350 MILLIGRAM
     Route: 048
     Dates: start: 20190603, end: 20190603
  4. PROPAVAN [Suspect]
     Active Substance: PROPIOMAZINE
     Dosage: 10 DOSAGE FORM
     Route: 048
     Dates: start: 20190603, end: 20190603

REACTIONS (3)
  - Intentional self-injury [Unknown]
  - Miosis [Unknown]
  - Intentional overdose [Unknown]

NARRATIVE: CASE EVENT DATE: 20190603
